FAERS Safety Report 9238493 (Version 1)
Quarter: 2013Q1

REPORT INFORMATION
  Report Type: Spontaneous
  Country: US (occurrence: None)
  Receive Date: 20121106
  Receipt Date: 20121106
  Transmission Date: 20140127
  Serious: No
  Sender: FDA-Public Use
  Company Number: 1000038654

PATIENT
  Age: 85 Year
  Sex: Male

DRUGS (3)
  1. DALIRESP [Suspect]
     Indication: CHRONIC OBSTRUCTIVE PULMONARY DISEASE
     Dates: start: 201209, end: 201209
  2. FLOMAX [Concomitant]
  3. VITAMIN D (VITAMIN D) [Concomitant]

REACTIONS (1)
  - Insomnia [None]
